FAERS Safety Report 4402332-X (Version None)
Quarter: 2004Q3

REPORT INFORMATION
  Report Type: 
  Country: None (occurrence: None)
  Receive Date: 20040716
  Receipt Date: 20040625
  Transmission Date: 20050211
  Serious: No
  Sender: FDA-Public Use
  Company Number: 8390

PATIENT
  Age: 66 Year
  Sex: Female

DRUGS (1)
  1. CYTARABINE [Suspect]

REACTIONS (2)
  - ATAXIA [None]
  - DYSARTHRIA [None]
